FAERS Safety Report 10346781 (Version 1)
Quarter: 2014Q3

REPORT INFORMATION
  Report Type: Spontaneous
  Country: US (occurrence: US)
  Receive Date: 20140729
  Receipt Date: 20140729
  Transmission Date: 20150326
  Serious: No
  Sender: FDA-Public Use
  Company Number: US-009507513-1407USA009655

PATIENT
  Age: 73 Year
  Sex: Male

DRUGS (6)
  1. TYLENOL [Concomitant]
     Active Substance: ACETAMINOPHEN
     Indication: BACK PAIN
  2. CLARITIN [Suspect]
     Active Substance: LORATADINE
     Indication: SYSTEMIC MASTOCYTOSIS
     Dosage: 10 MG DAILY
     Route: 048
  3. RANITIDINE [Suspect]
     Active Substance: RANITIDINE\RANITIDINE HYDROCHLORIDE
     Indication: SYSTEMIC MASTOCYTOSIS
     Dosage: 150 MG DAILY
  4. ADVIL [Concomitant]
     Active Substance: IBUPROFEN
     Indication: BACK PAIN
  5. INTRON A [Suspect]
     Active Substance: INTERFERON ALFA-2B
     Indication: SYSTEMIC MASTOCYTOSIS
     Dosage: 3.0 MILLION THREE TIMES WEEKLY
     Route: 058
  6. PREDNISONE. [Suspect]
     Active Substance: PREDNISONE
     Indication: SYSTEMIC MASTOCYTOSIS
     Dosage: 20 MG, TID

REACTIONS (2)
  - Nausea [Unknown]
  - Myalgia [Unknown]
